FAERS Safety Report 6942071-4 (Version None)
Quarter: 2010Q3

REPORT INFORMATION
  Report Type: 
  Country: None (occurrence: None)
  Receive Date: 20100823
  Receipt Date: 20100812
  Transmission Date: 20110219
  Serious: Yes (Hospitalization)
  Sender: FDA-Public Use
  Company Number: 017298

PATIENT
  Sex: Male
  Weight: 38 kg

DRUGS (3)
  1. KEPPRA [Suspect]
     Indication: EPILEPSY
     Dosage: (500 MG TID ORAL)
     Route: 048
     Dates: start: 20090101
  2. TRILEPTAL [Suspect]
     Indication: EPILEPSY
     Dosage: (300 MG BID ORAL)
     Route: 048
     Dates: start: 20090101
  3. CONVULEX /00228501/ (CONVULEX) (NOT SPECIFIED) [Suspect]
     Indication: EPILEPSY
     Dosage: (800 MG BID ORAL)
     Route: 048
     Dates: start: 20070101

REACTIONS (2)
  - INTERSTITIAL LUNG DISEASE [None]
  - PULMONARY FIBROSIS [None]
